FAERS Safety Report 5788805-6 (Version None)
Quarter: 2008Q2

REPORT INFORMATION
  Report Type: 
  Country: None (occurrence: None)
  Receive Date: 20080618
  Receipt Date: 20080122
  Transmission Date: 20081010
  Serious: Yes (Other)
  Sender: FDA-Public Use
  Company Number: 200718766US

PATIENT
  Age: 49 Year
  Sex: Male

DRUGS (7)
  1. APIDRA [Suspect]
     Indication: TYPE 2 DIABETES MELLITUS
     Dosage: QAM INJ
  2. OPTICLIK [Suspect]
     Indication: TYPE 2 DIABETES MELLITUS
  3. LANTUS [Suspect]
     Indication: TYPE 2 DIABETES MELLITUS
     Dosage: 60 U/DAY
  4. OPTICLIK GREY [Suspect]
  5. VALSARTAN (DIOVANE) [Concomitant]
  6. SIMVASTATIN, EZETIMIBE (VYTORIN) [Concomitant]
  7. CYANOCOBALAMIN (VITAMIN B12 AMINO) [Concomitant]

REACTIONS (2)
  - BLOOD GLUCOSE INCREASED [None]
  - HYPOGLYCAEMIA [None]
